FAERS Safety Report 8431696-5 (Version None)
Quarter: 2012Q2

REPORT INFORMATION
  Report Type: 
  Country: None (occurrence: None)
  Receive Date: 20120613
  Receipt Date: 20120605
  Transmission Date: 20120825
  Serious: Yes (Other)
  Sender: FDA-Public Use
  Company Number: US-JNJFOC-20120600115

PATIENT
  Sex: Female
  Weight: 77.11 kg

DRUGS (14)
  1. ASPIRIN [Concomitant]
     Route: 065
  2. CISAPRIDE [Suspect]
     Indication: IMPAIRED GASTRIC EMPTYING
     Route: 048
     Dates: start: 20020109
  3. CISAPRIDE [Suspect]
     Indication: GASTROOESOPHAGEAL REFLUX DISEASE
     Route: 048
     Dates: end: 20120529
  4. CISAPRIDE [Suspect]
     Route: 048
     Dates: start: 20020109
  5. ATENOLOL [Concomitant]
     Route: 065
  6. ZETIA [Concomitant]
     Route: 065
     Dates: start: 20030815
  7. CISAPRIDE [Suspect]
     Route: 048
     Dates: end: 20120529
  8. ALBUTEROL [Concomitant]
     Indication: SINUSITIS
     Route: 055
     Dates: start: 20110613
  9. FLORASTOR [Concomitant]
     Indication: SINUSITIS
     Route: 065
     Dates: start: 20110614
  10. AMOXICILLIN [Concomitant]
     Indication: SINUSITIS
     Route: 065
     Dates: start: 20110613
  11. NIFEDIAC [Concomitant]
     Route: 065
     Dates: start: 20040302
  12. ACIPHEX [Concomitant]
     Indication: GASTROOESOPHAGEAL REFLUX DISEASE
     Route: 065
  13. CALCIUM WITH VITAMIN D [Concomitant]
     Indication: OSTEOPENIA
     Route: 065
  14. SIMVASTATIN [Concomitant]
     Route: 065
     Dates: start: 20070601

REACTIONS (1)
  - ELECTROCARDIOGRAM ABNORMAL [None]
